FAERS Safety Report 4980541-9 (Version None)
Quarter: 2006Q2

REPORT INFORMATION
  Report Type: 
  Country: None (occurrence: None)
  Receive Date: 20060424
  Receipt Date: 20060413
  Transmission Date: 20061013
  Serious: Yes (Other)
  Sender: FDA-Public Use
  Company Number: GB-ROCHE-444930

PATIENT
  Sex: Male

DRUGS (1)
  1. RIVOTRIL [Suspect]
     Route: 065
     Dates: start: 20000615

REACTIONS (6)
  - ALCOHOLIC [None]
  - ANXIETY [None]
  - CONVULSION [None]
  - INSOMNIA [None]
  - LOSS OF CONSCIOUSNESS [None]
  - MANIA [None]
